FAERS Safety Report 8200822-5 (Version None)
Quarter: 2012Q1

REPORT INFORMATION
  Report Type: 
  Country: None (occurrence: None)
  Receive Date: 20120312
  Receipt Date: 20120306
  Transmission Date: 20120608
  Serious: Yes (Other)
  Sender: FDA-Public Use
  Company Number: US-PFIZER INC-2012060625

PATIENT
  Sex: Female

DRUGS (3)
  1. VISTARIL [Concomitant]
     Dosage: 50 MG, UNK
  2. GEODON [Suspect]
     Dosage: 40 MG, 2X/DAY
     Route: 048
  3. AMBIEN [Concomitant]
     Dosage: 10 MG, UNK

REACTIONS (4)
  - PAIN [None]
  - MENTAL DISORDER [None]
  - IMPAIRED WORK ABILITY [None]
  - ACCIDENT [None]
